FAERS Safety Report 8840120 (Version 2)
Quarter: 2012Q4

REPORT INFORMATION
  Report Type: 
  Country: US (occurrence: US)
  Receive Date: 20121015
  Receipt Date: 20121119
  Transmission Date: 20130627
  Serious: No
  Sender: FDA-Public Use
  Company Number: US-PFIZER INC-2012255086

PATIENT
  Age: 32 Year
  Sex: Female
  Weight: 113 kg

DRUGS (5)
  1. LYRICA [Suspect]
     Indication: FIBROMYALGIA
     Dosage: 150 mg, 2x/day
  2. METFORMIN [Concomitant]
     Indication: POLYCYSTIC OVARIAN SYNDROME
     Dosage: 500 mg, 2x/day
  3. NEXIUM [Concomitant]
     Indication: GASTROESOPHAGEAL REFLUX DISEASE
     Dosage: 40 mg, daily
  4. TRAZODONE [Concomitant]
     Indication: INSOMNIA
     Dosage: 50 mg, daily
  5. ZANAFLEX [Concomitant]
     Indication: MUSCLE SPASMS
     Dosage: 4 mg, daily

REACTIONS (1)
  - Nasopharyngitis [Recovering/Resolving]
